FAERS Safety Report 5634966-9 (Version None)
Quarter: 2008Q1

REPORT INFORMATION
  Report Type: 
  Country: None (occurrence: None)
  Receive Date: 20080222
  Receipt Date: 20080213
  Transmission Date: 20080703
  Serious: Yes (Hospitalization, Other)
  Sender: FDA-Public Use
  Company Number: PHBS2007JP11513

PATIENT
  Age: 14 Day
  Sex: Male

DRUGS (10)
  1. SANDIMMUNE [Suspect]
     Indication: HISTIOCYTOSIS HAEMATOPHAGIC
     Dosage: 3 MG/KG/D
     Route: 065
  2. SANDIMMUNE [Suspect]
     Dosage: 2 MG/KG/D
     Route: 065
  3. SANDIMMUNE [Suspect]
     Dosage: 1 MG/KG/D
     Route: 065
  4. PREDONINE [Concomitant]
     Indication: HISTIOCYTOSIS HAEMATOPHAGIC
     Route: 042
  5. ACYCLOVIR [Concomitant]
     Dosage: 60 MG/KG/D
     Route: 065
  6. ACYCLOVIR [Concomitant]
     Dosage: 40 MG/KG/D
     Route: 065
  7. DOBUTAMINE HYDROCHLORIDE [Concomitant]
     Dosage: 3 UG/KG/D
     Route: 065
  8. DOBUTAMINE HYDROCHLORIDE [Concomitant]
     Dosage: 2 UG/KG/D
     Route: 065
  9. DOPAMINE HYDROCHLORIDE [Concomitant]
     Dosage: 3 UG/KG/D
  10. DOPAMINE HYDROCHLORIDE [Concomitant]
     Dosage: 2 UG/KG/D

REACTIONS (26)
  - ALANINE AMINOTRANSFERASE INCREASED [None]
  - AMMONIA INCREASED [None]
  - ASCITES [None]
  - ASPARTATE AMINOTRANSFERASE INCREASED [None]
  - BILIRUBIN CONJUGATED INCREASED [None]
  - BLOOD BILIRUBIN INCREASED [None]
  - BLOOD CREATININE INCREASED [None]
  - BLOOD LACTATE DEHYDROGENASE INCREASED [None]
  - BLOOD PRESSURE INCREASED [None]
  - BLOOD UREA INCREASED [None]
  - CARDIAC FAILURE CONGESTIVE [None]
  - CARDIOMEGALY [None]
  - DRUG LEVEL INCREASED [None]
  - EJECTION FRACTION DECREASED [None]
  - HEPATIC FIBROSIS [None]
  - HEPATIC NECROSIS [None]
  - JAUNDICE CHOLESTATIC [None]
  - LIVER DISORDER [None]
  - MECHANICAL VENTILATION [None]
  - MITRAL VALVE INCOMPETENCE [None]
  - OEDEMA [None]
  - OLIGURIA [None]
  - PERICARDIAL EFFUSION [None]
  - PULMONARY HAEMORRHAGE [None]
  - RENAL FAILURE ACUTE [None]
  - RESPIRATORY FAILURE [None]
